FAERS Safety Report 17917000 (Version 2)
Quarter: 2020Q3

REPORT INFORMATION
  Report Type: Spontaneous
  Country: DE (occurrence: DE)
  Receive Date: 20200619
  Receipt Date: 20200929
  Transmission Date: 20201103
  Serious: Yes (Hospitalization)
  Sender: FDA-Public Use
  Company Number: DE-TEVA-2020-DE-1788728

PATIENT
  Age: 55 Year
  Sex: Male

DRUGS (8)
  1. METAMIZOL [Concomitant]
     Active Substance: METAMIZOLE SODIUM
     Dosage: 2000 MILLIGRAM DAILY; 1?1?1?1
  2. VARGATEF [Suspect]
     Active Substance: NINTEDANIB
     Route: 065
  3. DOCETAXEL. [Suspect]
     Active Substance: DOCETAXEL
     Dosage: 60 MG, LAST ON JANUARY 3RD, 2020
     Route: 042
  4. PANTOPRAZOL [Suspect]
     Active Substance: PANTOPRAZOLE SODIUM
     Dosage: 40 MILLIGRAM DAILY;  1?0?0?0
     Route: 065
  5. DEXAMETHASON [Suspect]
     Active Substance: DEXAMETHASONE
     Dosage: 4 MILLIGRAM DAILY;  1?0?1?0
  6. MOXIFLOXACIN. [Concomitant]
     Active Substance: MOXIFLOXACIN
     Dosage: 400 MILLIGRAM DAILY; 400 MG, 0?0?0?1, SINCE JANUARY 2ND, 2020 FOR 7 DAYS
  7. FENTANYL. [Concomitant]
     Active Substance: FENTANYL
     Dosage: 25 YG / H, PLASTER TRANSDERMAL
  8. MOVICOL [Concomitant]
     Active Substance: POLYETHYLENE GLYCOL 3350\POTASSIUM CHLORIDE\SODIUM BICARBONATE\SODIUM CHLORIDE
     Dosage: 1 DOSAGE FORMS DAILY; 1?0?0?0

REACTIONS (2)
  - Musculoskeletal pain [Recovering/Resolving]
  - Fracture [Recovering/Resolving]
